FAERS Safety Report 6743587-6 (Version None)
Quarter: 2010Q2

REPORT INFORMATION
  Report Type: 
  Country: None (occurrence: None)
  Receive Date: 20100526
  Receipt Date: 20100526
  Transmission Date: 20101027
  Serious: No
  Sender: FDA-Public Use
  Company Number: None

PATIENT
  Age: 5 Year
  Sex: Female
  Weight: 22.6799 kg

DRUGS (1)
  1. DAYTRANA [Suspect]
     Dosage: 10MG APPLY DAILY PATCH
     Dates: start: 20100520

REACTIONS (1)
  - HYPERSENSITIVITY [None]
